FAERS Safety Report 17290543 (Version 1)
Quarter: 2020Q1

REPORT INFORMATION
  Report Type: Spontaneous
  Country: US (occurrence: US)
  Receive Date: 20200121
  Receipt Date: 20200121
  Transmission Date: 20200409
  Serious: No
  Sender: FDA-Public Use
  Company Number: US-SUN PHARMACEUTICAL INDUSTRIES LTD-2019R1-223957

PATIENT
  Sex: Female

DRUGS (1)
  1. AMBRISENTAN [Suspect]
     Active Substance: AMBRISENTAN
     Indication: PRODUCT USED FOR UNKNOWN INDICATION
     Dosage: 10 MILLIGRAM, QD
     Route: 048
     Dates: start: 20190510

REACTIONS (4)
  - Dysarthria [Unknown]
  - Asthenia [Unknown]
  - Pain in extremity [Unknown]
  - Chest pain [Unknown]

NARRATIVE: CASE EVENT DATE: 2019
